FAERS Safety Report 17371960 (Version 1)
Quarter: 2020Q1

REPORT INFORMATION
  Report Type: Spontaneous
  Country: TW (occurrence: TW)
  Receive Date: 20200205
  Receipt Date: 20200205
  Transmission Date: 20200409
  Serious: Yes (Hospitalization)
  Sender: FDA-Public Use
  Company Number: TW-ANIPHARMA-2020-TW-000007

PATIENT
  Age: 50 Year
  Sex: Male

DRUGS (3)
  1. METHYLPREDNISOLONE. [Suspect]
     Active Substance: METHYLPREDNISOLONE
     Indication: HYPERSENSITIVITY PNEUMONITIS
     Dosage: 40 MG TWICE DAILY
     Route: 042
     Dates: start: 20180619, end: 20180623
  2. DEXAMETHASONE (NON-SPECIFIC) [Suspect]
     Active Substance: DEXAMETHASONE
     Indication: HYPERSENSITIVITY PNEUMONITIS
     Dosage: 4 MG 3 TIMES DAILY
     Route: 048
     Dates: start: 20180602, end: 20180702
  3. HYDROCORTISONE. [Suspect]
     Active Substance: HYDROCORTISONE
     Indication: HYPERSENSITIVITY PNEUMONITIS
     Dosage: 100 MG EVERY 8 HOURS
     Route: 042
     Dates: start: 20180528, end: 20180601

REACTIONS (1)
  - Pneumatosis intestinalis [Recovered/Resolved]
